APPROVED DRUG PRODUCT: BUSULFAN
Active Ingredient: BUSULFAN
Strength: 6MG/ML
Dosage Form/Route: INJECTABLE;INJECTION
Application: A210931 | Product #001 | TE Code: AP
Applicant: SHILPA MEDICARE LTD
Approved: Apr 18, 2019 | RLD: No | RS: No | Type: RX